FAERS Safety Report 21450615 (Version 3)
Quarter: 2022Q4

REPORT INFORMATION
  Report Type: Spontaneous
  Country: US (occurrence: US)
  Receive Date: 20221013
  Receipt Date: 20221212
  Transmission Date: 20230113
  Serious: No
  Sender: FDA-Public Use
  Company Number: US-LUPIN PHARMACEUTICALS INC.-2022-11898

PATIENT

DRUGS (6)
  1. LEVOTHYROXINE SODIUM [Suspect]
     Active Substance: LEVOTHYROXINE SODIUM
     Indication: Hypothyroidism
     Dosage: 50 MCG, QD
     Route: 065
     Dates: start: 20220929
  2. LEVOTHYROXINE SODIUM [Suspect]
     Active Substance: LEVOTHYROXINE SODIUM
     Dosage: 25 MCG, QD (HALF TABLET)
     Route: 065
     Dates: start: 20221007
  3. ASPIRIN [Concomitant]
     Active Substance: ASPIRIN
     Indication: Sclerotherapy
     Dosage: 1 DOSAGE FORM, QD
     Route: 065
  4. VITAMINS [Concomitant]
     Active Substance: VITAMINS
     Indication: Product used for unknown indication
     Dosage: UNK
     Route: 065
  5. Glucosamine chondroitin msm [Concomitant]
     Indication: Arthropathy
     Dosage: UNK (TWO PER DAY (UNSPECIFIED))
     Route: 065
  6. Glucosamine chondroitin msm [Concomitant]
     Dosage: UNK (ONE PER DAY (UNSPECIFIED))
     Route: 065

REACTIONS (7)
  - Feeling abnormal [Unknown]
  - Oral pain [Recovering/Resolving]
  - Oropharyngeal pain [Recovering/Resolving]
  - Cough [Recovering/Resolving]
  - Dysgeusia [Recovering/Resolving]
  - Throat irritation [Recovering/Resolving]
  - Stomatitis [Recovering/Resolving]
